FAERS Safety Report 5339841-5 (Version None)
Quarter: 2007Q2

REPORT INFORMATION
  Report Type: 
  Country: None (occurrence: None)
  Receive Date: 20070529
  Receipt Date: 20070515
  Transmission Date: 20071010
  Serious: Yes (Other)
  Sender: FDA-Public Use
  Company Number: T200700558

PATIENT
  Age: 60 Year
  Sex: Male

DRUGS (2)
  1. MORPHINE [Suspect]
     Indication: GENERAL ANAESTHESIA
     Dosage: 20 MG, INTRAVENOUS
     Route: 042
  2. CARBON DIOXIDE (CARBON DIOXIDE) [Suspect]
     Indication: LAPAROSCOPIC SURGERY

REACTIONS (6)
  - ACIDOSIS [None]
  - GRAND MAL CONVULSION [None]
  - HYPERCAPNIA [None]
  - POST PROCEDURAL COMPLICATION [None]
  - RESPIRATORY RATE DECREASED [None]
  - SUBCUTANEOUS EMPHYSEMA [None]
